FAERS Safety Report 14327569 (Version 3)
Quarter: 2018Q1

REPORT INFORMATION
  Report Type: Spontaneous
  Country: US (occurrence: US)
  Receive Date: 20171227
  Receipt Date: 20180326
  Transmission Date: 20180509
  Serious: No
  Sender: FDA-Public Use
  Company Number: US-PFIZER INC-2017546564

PATIENT
  Age: 57 Year
  Sex: Male
  Weight: 126.5 kg

DRUGS (10)
  1. LYRICA [Suspect]
     Active Substance: PREGABALIN
     Dosage: 800 MG, DAILY [1 CAPSULE 8 TIMES PER DAY]
  2. CARBIDOPA. [Concomitant]
     Active Substance: CARBIDOPA
     Dosage: UNK, DAILY (4.5 TABS PER DAY)
  3. LYRICA [Suspect]
     Active Substance: PREGABALIN
     Indication: PAIN IN EXTREMITY
     Dosage: UNK UNK, 3X/DAY
     Dates: start: 2007
  4. LYRICA [Suspect]
     Active Substance: PREGABALIN
     Dosage: UNK
  5. RYTARY [Concomitant]
     Active Substance: CARBIDOPA\LEVODOPA
     Dosage: UNK (245 MG 4 A DAY; 195 MG 5 A DAY)
  6. LYRICA [Suspect]
     Active Substance: PREGABALIN
     Dosage: UNK UNK, AS NEEDED AT NIGHT
     Dates: start: 2007
  7. LEVODOPA [Concomitant]
     Active Substance: LEVODOPA
     Dosage: UNK, DAILY (4.5 TABS PER DAY)
  8. LYRICA [Suspect]
     Active Substance: PREGABALIN
     Dosage: 60 MG, DAILY [SIX TIMES A DAY]
  9. CARBIDOPA. [Concomitant]
     Active Substance: CARBIDOPA
     Indication: PARKINSON^S DISEASE
     Dosage: UNK [10 TIMES A DAY]
  10. LEVODOPA [Concomitant]
     Active Substance: LEVODOPA
     Indication: PARKINSON^S DISEASE
     Dosage: UNK [10 TIMES A DAY]

REACTIONS (9)
  - Intentional overdose [Not Recovered/Not Resolved]
  - Abnormal dreams [Not Recovered/Not Resolved]
  - Dry mouth [Not Recovered/Not Resolved]
  - Drug dose omission [Recovered/Resolved]
  - Libido increased [Not Recovered/Not Resolved]
  - Erection increased [Not Recovered/Not Resolved]
  - Product use in unapproved indication [Not Recovered/Not Resolved]
  - Erectile dysfunction [Not Recovered/Not Resolved]
  - Inappropriate schedule of drug administration [Recovered/Resolved]

NARRATIVE: CASE EVENT DATE: 2007
